FAERS Safety Report 10664197 (Version 1)
Quarter: 2014Q4

REPORT INFORMATION
  Report Type: Spontaneous
  Country: JP (occurrence: None)
  Receive Date: 20141217
  Receipt Date: 20141217
  Transmission Date: 20150529
  Serious: Yes (Other)
  Sender: FDA-Public Use
  Company Number: JP-018009

PATIENT
  Age: 63 Year
  Sex: Male

DRUGS (1)
  1. DEGARELIX (GONAX) [Suspect]
     Active Substance: DEGARELIX
     Indication: PROSTATE CANCER

REACTIONS (1)
  - Musculoskeletal pain [None]
